FAERS Safety Report 5449992-2 (Version None)
Quarter: 2007Q3

REPORT INFORMATION
  Report Type: 
  Country: None (occurrence: None)
  Receive Date: 20070912
  Receipt Date: 20070903
  Transmission Date: 20080115
  Serious: Yes (Hospitalization)
  Sender: FDA-Public Use
  Company Number: FR-AVENTIS-200712821FR

PATIENT
  Age: 101 Year
  Sex: Female

DRUGS (12)
  1. LASIX [Suspect]
     Indication: ESSENTIAL HYPERTENSION
     Route: 048
     Dates: end: 20070101
  2. LAROXYL [Suspect]
     Indication: DEPRESSION
     Route: 048
     Dates: end: 20070425
  3. IBUPROFEN [Concomitant]
     Route: 048
     Dates: end: 20070425
  4. EQUANIL [Concomitant]
     Indication: DEPRESSION
     Route: 048
  5. DEPAMIDE [Concomitant]
     Route: 048
  6. RAMIPRIL [Concomitant]
     Indication: ESSENTIAL HYPERTENSION
     Route: 048
  7. AMLODIPINE BESYLATE [Concomitant]
     Indication: ESSENTIAL HYPERTENSION
     Route: 048
     Dates: end: 20070101
  8. CLONAZEPAM [Concomitant]
     Route: 048
     Dates: end: 20070426
  9. INIPOMP                            /01263201/ [Concomitant]
  10. GAVISCON                           /01405501/ [Concomitant]
  11. ACETAMINOPHEN [Concomitant]
  12. MOVICOL                            /01053601/ [Concomitant]

REACTIONS (7)
  - ABDOMINAL PAIN UPPER [None]
  - BLOOD AMYLASE INCREASED [None]
  - FAECAL VOMITING [None]
  - FAECALOMA [None]
  - HAEMATEMESIS [None]
  - HYPOKALAEMIA [None]
  - SUBILEUS [None]
